FAERS Safety Report 9692547 (Version 2)
Quarter: 2014Q2

REPORT INFORMATION
  Report Type: Spontaneous
  Country: US (occurrence: US)
  Receive Date: 20131118
  Receipt Date: 20140519
  Transmission Date: 20141212
  Serious: Yes (Hospitalization)
  Sender: FDA-Public Use
  Company Number: US-BAYER-2013-137730

PATIENT
  Age: 35 Year
  Sex: Female

DRUGS (7)
  1. YAZ [Suspect]
     Dosage: UNK
     Dates: start: 201005
  2. GIANVI [Suspect]
     Dosage: UNK
     Dates: start: 201007
  3. PHENTERMINE [Concomitant]
  4. FEXOFENADINE [Concomitant]
  5. CELEXA [Concomitant]
     Dosage: 20 MG, DAILY,
  6. CELEBREX [Concomitant]
     Indication: PAIN
     Dosage: 200 MG, UNK
  7. CYCLOBENZAPRINE [Concomitant]
     Indication: MUSCLE SPASMS
     Dosage: 10 MG, BEDTIME AS NEEDED, 30 DISPENSED

REACTIONS (5)
  - Transient ischaemic attack [None]
  - Cerebrovascular accident [None]
  - Injury [None]
  - Pain [None]
  - Pain [None]
